FAERS Safety Report 7414362-4 (Version None)
Quarter: 2011Q2

REPORT INFORMATION
  Report Type: 
  Country: None (occurrence: None)
  Receive Date: 20110407
  Receipt Date: 20110328
  Transmission Date: 20111010
  Serious: Yes (Hospitalization)
  Sender: FDA-Public Use
  Company Number: DAV-AE-MTX-11-011

PATIENT
  Age: 5 Year
  Sex: Female

DRUGS (5)
  1. HIGH-DOSE IV METHOTREXATE [Concomitant]
  2. CYTARABINE [Concomitant]
  3. HYDROCORTISONE [Concomitant]
  4. ORAL MERCAPTOPURINE [Concomitant]
  5. METHOTREXATE [Suspect]
     Indication: ACUTE LYMPHOCYTIC LEUKAEMIA
     Dosage: 12MG

REACTIONS (4)
  - DYSARTHRIA [None]
  - HEMIPARESIS [None]
  - NEUROTOXICITY [None]
  - PARAESTHESIA [None]
